FAERS Safety Report 10434375 (Version 1)
Quarter: 2014Q3

REPORT INFORMATION
  Report Type: Spontaneous
  Country: IT (occurrence: IT)
  Receive Date: 20140905
  Receipt Date: 20140905
  Transmission Date: 20150326
  Serious: Yes (Hospitalization)
  Sender: FDA-Public Use
  Company Number: IT-TEVA-505621ISR

PATIENT
  Age: 54 Year
  Sex: Male

DRUGS (2)
  1. MUSCORIL [Concomitant]
     Active Substance: THIOCOLCHICOSIDE
  2. DICLOFENAC RATIOPHARM [Suspect]
     Active Substance: DICLOFENAC
     Indication: BACK PAIN
     Dosage: 75 MILLIGRAM DAILY;
     Route: 030
     Dates: start: 20140712, end: 20140712

REACTIONS (4)
  - Abdominal pain upper [Recovered/Resolved]
  - Urticaria [Recovered/Resolved]
  - Extrasystoles [Recovered/Resolved]
  - Oedema peripheral [Recovered/Resolved]

NARRATIVE: CASE EVENT DATE: 20140712
